FAERS Safety Report 4890052-7 (Version None)
Quarter: 2006Q1

REPORT INFORMATION
  Report Type: 
  Country: None (occurrence: None)
  Receive Date: 20060120
  Receipt Date: 20060104
  Transmission Date: 20060701
  Serious: Yes (Other)
  Sender: FDA-Public Use
  Company Number: DSA_27628_2006

PATIENT
  Sex: Male

DRUGS (1)
  1. ENALAPRIL MALEATE [Suspect]
     Dosage: 20 MG Q DAY PO
     Route: 048
     Dates: start: 19940101, end: 20051101

REACTIONS (1)
  - ADRENAL INSUFFICIENCY [None]
